FAERS Safety Report 10077320 (Version 2)
Quarter: 2014Q2

REPORT INFORMATION
  Report Type: Spontaneous
  Country: US (occurrence: US)
  Receive Date: 20140414
  Receipt Date: 20140414
  Transmission Date: 20141212
  Serious: No
  Sender: FDA-Public Use
  Company Number: US-BANPHARM-20131314

PATIENT
  Age: 65 Year
  Sex: Female
  Weight: 78.93 kg

DRUGS (2)
  1. ALEVE LIQUID GELS 220 MG [Suspect]
     Indication: ARTHRITIS
     Route: 048
     Dates: start: 201304, end: 201304
  2. ALKA SELTZER PLUS [Suspect]
     Indication: NASOPHARYNGITIS
     Dosage: 2 DF, Q4HR,
     Route: 048
     Dates: start: 200804, end: 200804

REACTIONS (1)
  - Drug ineffective [Unknown]
